FAERS Safety Report 9330570 (Version 4)
Quarter: 2013Q4

REPORT INFORMATION
  Report Type: Spontaneous
  Country: JP (occurrence: JP)
  Receive Date: 20130605
  Receipt Date: 20131024
  Transmission Date: 20140711
  Serious: Yes (Life-Threatening, Hospitalization, Other)
  Sender: FDA-Public Use
  Company Number: PHHY2013JP048145

PATIENT
  Age: 62 Year
  Sex: Male
  Weight: 73 kg

DRUGS (4)
  1. TEGRETOL [Suspect]
     Indication: PARTIAL SEIZURES
     Dosage: 300 MG, DAILY
     Route: 048
     Dates: start: 20120814
  2. TEGRETOL [Suspect]
     Dosage: 400 MG, DAILY
     Route: 048
     Dates: end: 20120907
  3. RISPERIDONE [Suspect]
     Dosage: UNK UKN, UNK
     Dates: start: 20120823, end: 20120914
  4. RISPERIDONE [Suspect]
     Dosage: 2 MG, BID

REACTIONS (18)
  - Encephalitis [Recovering/Resolving]
  - Condition aggravated [Recovering/Resolving]
  - Hyponatraemia [Recovered/Resolved]
  - Complex partial seizures [Recovering/Resolving]
  - Somnolence [Recovering/Resolving]
  - Insomnia [Recovering/Resolving]
  - Inappropriate antidiuretic hormone secretion [Recovered/Resolved]
  - Mania [Recovering/Resolving]
  - Agitation [Recovering/Resolving]
  - Delusion [Recovering/Resolving]
  - Anger [Recovering/Resolving]
  - Aggression [Recovering/Resolving]
  - Hallucinations, mixed [Recovering/Resolving]
  - Delusion of grandeur [Recovering/Resolving]
  - Logorrhoea [Recovering/Resolving]
  - Drug eruption [Recovered/Resolved]
  - Pruritus [Recovering/Resolving]
  - Rash [Recovering/Resolving]
